FAERS Safety Report 6972735-8 (Version None)
Quarter: 2010Q3

REPORT INFORMATION
  Report Type: 
  Country: None (occurrence: None)
  Receive Date: 20100909
  Receipt Date: 20100831
  Transmission Date: 20110219
  Serious: Yes (Hospitalization)
  Sender: FDA-Public Use
  Company Number: AU-ASTRAZENECA-2010SE41085

PATIENT
  Sex: Male

DRUGS (1)
  1. SYMBICORT SMART [Suspect]
     Route: 055

REACTIONS (1)
  - CONDITION AGGRAVATED [None]
